FAERS Safety Report 8317308-X (Version None)
Quarter: 2012Q2

REPORT INFORMATION
  Report Type: 
  Country: None (occurrence: None)
  Receive Date: 20120427
  Receipt Date: 20120416
  Transmission Date: 20120825
  Serious: Yes (Other)
  Sender: FDA-Public Use
  Company Number: CA-JNJFOC-20120408285

PATIENT
  Sex: Female
  Weight: 88.9 kg

DRUGS (1)
  1. REMICADE [Suspect]
     Indication: RHEUMATOID ARTHRITIS
     Route: 042
     Dates: start: 20110509

REACTIONS (3)
  - PAIN [None]
  - ASTIGMATISM [None]
  - NEUROPATHY PERIPHERAL [None]
